FAERS Safety Report 12124526 (Version 1)
Quarter: 2016Q1

REPORT INFORMATION
  Report Type: Report from Study
  Country: US (occurrence: US)
  Receive Date: 20160229
  Receipt Date: 20160229
  Transmission Date: 20160526
  Serious: Yes (Other)
  Sender: FDA-Public Use
  Company Number: US-NOVOPROD-481551

PATIENT
  Age: 48 Year
  Sex: Female
  Weight: 70.3 kg

DRUGS (3)
  1. VICTOZA [Suspect]
     Active Substance: LIRAGLUTIDE
     Indication: OFF LABEL USE
  2. MECLIZINE [Concomitant]
     Active Substance: MECLIZINE HYDROCHLORIDE
     Indication: VERTIGO
  3. VICTOZA [Suspect]
     Active Substance: LIRAGLUTIDE
     Indication: DUMPING SYNDROME
     Dosage: 0.6 MG, QD
     Route: 058
     Dates: start: 2015

REACTIONS (3)
  - Dehydration [Recovered/Resolved]
  - Gastritis [Recovered/Resolved]
  - Off label use [Not Recovered/Not Resolved]

NARRATIVE: CASE EVENT DATE: 2015
